FAERS Safety Report 16981573 (Version 2)
Quarter: 2020Q1

REPORT INFORMATION
  Report Type: Report from Study
  Country: None (occurrence: US)
  Receive Date: 20191101
  Receipt Date: 20200205
  Transmission Date: 20200409
  Serious: Yes (Hospitalization)
  Sender: FDA-Public Use
  Company Number: US-ABBVIE-19K-163-2942188-00

PATIENT
  Age: 44 Year
  Sex: Male
  Weight: 63.56 kg

DRUGS (7)
  1. HUMIRA [Suspect]
     Active Substance: ADALIMUMAB
     Route: 058
     Dates: start: 201902, end: 20191010
  2. PREDNISONE. [Concomitant]
     Active Substance: PREDNISONE
     Dates: start: 201904, end: 201908
  3. APIXABAN [Concomitant]
     Active Substance: APIXABAN
     Indication: PRODUCT USED FOR UNKNOWN INDICATION
  4. MESALAMINE. [Concomitant]
     Active Substance: MESALAMINE
     Indication: PRODUCT USED FOR UNKNOWN INDICATION
     Route: 065
  5. HUMIRA [Suspect]
     Active Substance: ADALIMUMAB
     Indication: CROHN^S DISEASE
     Route: 058
  6. ATORVASTATIN [Concomitant]
     Active Substance: ATORVASTATIN
     Indication: PRODUCT USED FOR UNKNOWN INDICATION
  7. PREDNISONE. [Concomitant]
     Active Substance: PREDNISONE
     Indication: PRODUCT USED FOR UNKNOWN INDICATION
     Dates: start: 201902, end: 201903

REACTIONS (21)
  - Balance disorder [Unknown]
  - Cognitive disorder [Not Recovered/Not Resolved]
  - Amnesia [Unknown]
  - Impaired work ability [Unknown]
  - Dizziness [Unknown]
  - Dysarthria [Unknown]
  - Inflammation [Recovering/Resolving]
  - Irritability [Unknown]
  - Constipation [Unknown]
  - Crying [Unknown]
  - Vomiting [Recovered/Resolved]
  - Gastrointestinal oedema [Unknown]
  - Anger [Unknown]
  - Visual impairment [Unknown]
  - Diarrhoea [Unknown]
  - Fatigue [Unknown]
  - Renal disorder [Unknown]
  - Feeling abnormal [Not Recovered/Not Resolved]
  - Thrombosis [Recovering/Resolving]
  - Tinnitus [Unknown]
  - Cerebral disorder [Unknown]

NARRATIVE: CASE EVENT DATE: 201902
